FAERS Safety Report 4785030-2 (Version None)
Quarter: 2005Q3

REPORT INFORMATION
  Report Type: 
  Country: None (occurrence: None)
  Receive Date: 20050928
  Receipt Date: 20050909
  Transmission Date: 20060218
  Serious: Yes (Hospitalization, Other)
  Sender: FDA-Public Use
  Company Number: US_0503113671

PATIENT
  Age: 45 Year
  Sex: Male
  Weight: 84 kg

DRUGS (3)
  1. ZYPREXA [Suspect]
     Indication: ANXIETY
     Dosage: UNK
     Route: 065
     Dates: start: 19990715, end: 20021108
  2. ZYPREXA [Suspect]
     Indication: BIPOLAR DISORDER
     Dosage: UNK
     Route: 065
     Dates: start: 19990715, end: 20021108
  3. ZYPREXA [Suspect]
     Indication: DEPRESSION
     Dosage: UNK
     Route: 065
     Dates: start: 19990715, end: 20021108

REACTIONS (49)
  - ABDOMINAL PAIN [None]
  - ALBUMIN GLOBULIN RATIO INCREASED [None]
  - ANGINA PECTORIS [None]
  - ASTHENIA [None]
  - BACK PAIN [None]
  - BARRETT'S OESOPHAGUS [None]
  - BENIGN PROSTATIC HYPERPLASIA [None]
  - BLOOD CHOLESTEROL INCREASED [None]
  - BLOOD CREATINE PHOSPHOKINASE INCREASED [None]
  - BLOOD GLUCOSE FLUCTUATION [None]
  - BLOOD POTASSIUM INCREASED [None]
  - BLOOD TRIGLYCERIDES INCREASED [None]
  - BRONCHITIS [None]
  - CELLULITIS [None]
  - CHEST PAIN [None]
  - DIABETES MELLITUS [None]
  - DIABETIC COMA [None]
  - DIABETIC KETOACIDOSIS [None]
  - ENDOCARDITIS STAPHYLOCOCCAL [None]
  - GASTRITIS [None]
  - GASTROOESOPHAGEAL REFLUX DISEASE [None]
  - HEADACHE [None]
  - HEPATITIS [None]
  - HEPATITIS B [None]
  - HEPATITIS C [None]
  - HIGH DENSITY LIPOPROTEIN DECREASED [None]
  - HYPERLIPIDAEMIA [None]
  - HYPERTENSION [None]
  - INFLAMMATION [None]
  - MIGRAINE [None]
  - MYOSITIS [None]
  - NAUSEA [None]
  - NECK PAIN [None]
  - OESOPHAGEAL CANDIDIASIS [None]
  - OESOPHAGEAL STENOSIS [None]
  - OESOPHAGITIS [None]
  - PAIN [None]
  - PAIN IN EXTREMITY [None]
  - PARTIAL SEIZURES [None]
  - PERIPHERAL SENSORY NEUROPATHY [None]
  - PNEUMOTHORAX [None]
  - PROSTATITIS [None]
  - RENAL INJURY [None]
  - RIB FRACTURE [None]
  - ROAD TRAFFIC ACCIDENT [None]
  - SPLENIC RUPTURE [None]
  - VISION BLURRED [None]
  - VOMITING [None]
  - WEIGHT INCREASED [None]
